FAERS Safety Report 8512566-0 (Version None)
Quarter: 2012Q3

REPORT INFORMATION
  Report Type: 
  Country: None (occurrence: None)
  Receive Date: 20120716
  Receipt Date: 20120711
  Transmission Date: 20120928
  Serious: Yes (Hospitalization)
  Sender: FDA-Public Use
  Company Number: US-ROCHE-1087773

PATIENT
  Sex: Male
  Weight: 83.536 kg

DRUGS (3)
  1. TELAPREVIR [Suspect]
     Indication: HEPATITIS C
     Route: 048
     Dates: start: 20110526, end: 20110601
  2. COPEGUS [Suspect]
     Indication: HEPATITIS C
     Dates: start: 20110526, end: 20110602
  3. PEGASYS [Suspect]
     Indication: HEPATITIS C
     Dosage: DOSE: 180 UG/WEEK
     Dates: start: 20110526, end: 20110526

REACTIONS (4)
  - LEUKOPENIA [None]
  - HAEMORRHAGE [None]
  - THROMBOCYTOPENIA [None]
  - ANAEMIA [None]
